FAERS Safety Report 18197771 (Version 7)
Quarter: 2022Q3

REPORT INFORMATION
  Report Type: Spontaneous
  Country: US (occurrence: US)
  Receive Date: 20200826
  Receipt Date: 20220715
  Transmission Date: 20221026
  Serious: No
  Sender: FDA-Public Use
  Company Number: US-PFIZER INC-2020329452

PATIENT
  Age: 51 Year
  Sex: Female

DRUGS (3)
  1. TOVIAZ [Suspect]
     Active Substance: FESOTERODINE FUMARATE
     Dosage: UNK, EVERY DAY
  2. TOVIAZ [Suspect]
     Active Substance: FESOTERODINE FUMARATE
     Dosage: 4 MG, EVERY OTHER DAY
  3. TOVIAZ [Suspect]
     Active Substance: FESOTERODINE FUMARATE
     Dosage: 4 MG, ONCE DAILY (QD) AT BEDTIME (HS)
     Route: 048

REACTIONS (4)
  - Amnesia [Unknown]
  - Immune system disorder [Unknown]
  - Asthma [Unknown]
  - Intentional product misuse [Unknown]
